FAERS Safety Report 4730282-8 (Version None)
Quarter: 2005Q3

REPORT INFORMATION
  Report Type: 
  Country: None (occurrence: None)
  Receive Date: 20050728
  Receipt Date: 20050727
  Transmission Date: 20060218
  Serious: Yes (Other)
  Sender: FDA-Public Use
  Company Number: HQWYE243818JUL05

PATIENT
  Age: 77 Year
  Sex: Female

DRUGS (7)
  1. ANCARON (AMIODARONE, TABLET) [Suspect]
     Indication: ATRIAL FIBRILLATION
     Dosage: 100 MG 2X PER 1 DAY ORAL
     Route: 048
     Dates: start: 20041120, end: 20050124
  2. ANCARON (AMIODARONE, TABLET) [Suspect]
     Indication: VENTRICULAR TACHYCARDIA
     Dosage: 100 MG 2X PER 1 DAY ORAL
     Route: 048
     Dates: start: 20041120, end: 20050124
  3. PIMENOL (PIRMENOL HYDROCHLORIDE, ) [Suspect]
     Dosage: SEE IMAGE
     Route: 048
     Dates: start: 20011001, end: 20040419
  4. PIMENOL (PIRMENOL HYDROCHLORIDE, ) [Suspect]
     Dosage: SEE IMAGE
     Route: 048
     Dates: start: 20040420, end: 20041001
  5. PIMENOL (PIRMENOL HYDROCHLORIDE, ) [Suspect]
     Dosage: SEE IMAGE
     Route: 048
     Dates: start: 20041207, end: 20050124
  6. . [Concomitant]
  7. . [Concomitant]

REACTIONS (15)
  - ALANINE AMINOTRANSFERASE INCREASED [None]
  - ANOREXIA [None]
  - ASPARTATE AMINOTRANSFERASE INCREASED [None]
  - ATRIAL FIBRILLATION [None]
  - BLOOD LACTATE DEHYDROGENASE INCREASED [None]
  - DRUG INTERACTION [None]
  - DRUG LEVEL INCREASED [None]
  - LIVER DISORDER [None]
  - PYREXIA [None]
  - SHOCK [None]
  - SICK SINUS SYNDROME [None]
  - SINUS ARREST [None]
  - SYNCOPE [None]
  - VENTRICULAR TACHYCARDIA [None]
  - VOMITING [None]
